FAERS Safety Report 23997027 (Version 1)
Quarter: 2024Q2

REPORT INFORMATION
  Report Type: Spontaneous
  Country: CN (occurrence: CN)
  Receive Date: 20240621
  Receipt Date: 20240621
  Transmission Date: 20240716
  Serious: Yes (Hospitalization)
  Sender: FDA-Public Use
  Company Number: CN-PFIZER INC-PV202400079610

PATIENT
  Age: 72 Year
  Sex: Male
  Weight: 120 kg

DRUGS (4)
  1. AVIBACTAM SODIUM\CEFTAZIDIME [Suspect]
     Active Substance: AVIBACTAM SODIUM\CEFTAZIDIME
     Indication: Febrile infection
     Dosage: TIME INTERVAL: 0.33333333 DAYS: 2.5 G, 3X/DAY
     Route: 041
     Dates: start: 20240529, end: 20240608
  2. TIGECYCLINE [Suspect]
     Active Substance: TIGECYCLINE
     Indication: Pyrexia
     Dosage: 50 MG, 2X/DAY
     Route: 041
     Dates: start: 20240530, end: 20240609
  3. SODIUM CHLORIDE [Concomitant]
     Active Substance: SODIUM CHLORIDE
     Indication: Vehicle solution use
     Dosage: TIME INTERVAL: 0.33333333 DAYS: 100 ML, 3X/DAY (Q8 WITH AVIBACTAM SODIUM, CEFTAZIDIME PENTAHYDRATE)
     Route: 041
     Dates: start: 20240529, end: 20240608
  4. SODIUM CHLORIDE [Concomitant]
     Active Substance: SODIUM CHLORIDE
     Indication: Vehicle solution use
     Dosage: 100 ML, 2X/DAY (Q12 WITH TIGECYCLINE)
     Route: 065

REACTIONS (2)
  - Dysbiosis [Recovering/Resolving]
  - Frequent bowel movements [Recovering/Resolving]

NARRATIVE: CASE EVENT DATE: 20240605
